FAERS Safety Report 17070075 (Version 1)
Quarter: 2019Q4

REPORT INFORMATION
  Report Type: Report from Study
  Country: CO (occurrence: CO)
  Receive Date: 20191125
  Receipt Date: 20191125
  Transmission Date: 20200122
  Serious: Yes (Hospitalization, Other)
  Sender: FDA-Public Use
  Company Number: CO-ROCHE-2429820

PATIENT
  Sex: Male

DRUGS (1)
  1. MABTHERA [Suspect]
     Active Substance: RITUXIMAB
     Indication: PRODUCT USED FOR UNKNOWN INDICATION
     Route: 065

REACTIONS (13)
  - General physical health deterioration [Unknown]
  - Cardiac infection [Unknown]
  - Blood bilirubin increased [Unknown]
  - Immunodeficiency [Unknown]
  - Splenic infection [Unknown]
  - Pyrexia [Unknown]
  - Fall [Unknown]
  - Condition aggravated [Unknown]
  - Malaise [Unknown]
  - Anaemia [Unknown]
  - Pneumonia [Unknown]
  - Hepatic infection [Unknown]
  - Seizure [Unknown]
